FAERS Safety Report 6982369-7 (Version None)
Quarter: 2010Q3

REPORT INFORMATION
  Report Type: 
  Country: None (occurrence: None)
  Receive Date: 20100914
  Receipt Date: 20100122
  Transmission Date: 20110219
  Serious: No
  Sender: FDA-Public Use
  Company Number: US-PFIZER INC-2009311662

PATIENT
  Sex: Female

DRUGS (5)
  1. LYRICA [Suspect]
     Indication: FIBROMYALGIA
     Dosage: 75 MG, 2X/DAY
     Dates: start: 20081101
  2. PROZAC [Concomitant]
  3. FLEXERIL [Concomitant]
  4. PREVACID [Concomitant]
  5. MOBIC [Concomitant]

REACTIONS (1)
  - ALOPECIA [None]
